FAERS Safety Report 10387868 (Version 1)
Quarter: 2014Q1

REPORT INFORMATION
  Report Type: Spontaneous
  Country: US (occurrence: None)
  Receive Date: 20140306
  Receipt Date: 20140306
  Transmission Date: 20141002
  Serious: Yes (Hospitalization)
  Sender: FDA-Public Use
  Company Number: 163-21880-13121262

PATIENT
  Age: 73 Year
  Sex: Male
  Weight: 83.5 kg

DRUGS (7)
  1. REVLIMID (LENALIDOMIDE) (25 MILLIGRAM, CAPSULES) [Suspect]
     Indication: PLASMA CELL MYELOMA
     Route: 048
     Dates: start: 201207
  2. ASA (ACETYLSALICYLIC ACID) [Concomitant]
  3. LASIX (FUROSEMIDE) [Concomitant]
  4. MAGNESIUM (MAGNESIUM) [Concomitant]
  5. VITAMINS (VITAMINS) [Concomitant]
  6. PAIN MEDS (OTHER THERAPEUTIC PRODUCTS) [Concomitant]
  7. POTASSIUM (POTASSIUM) [Concomitant]

REACTIONS (2)
  - Plasma cell myeloma [None]
  - Renal failure acute [None]
